FAERS Safety Report 19751628 (Version 3)
Quarter: 2021Q3

REPORT INFORMATION
  Report Type: Report from Study
  Country: US (occurrence: US)
  Receive Date: 20210827
  Receipt Date: 20210831
  Transmission Date: 20211014
  Serious: Yes (Hospitalization, Other)
  Sender: FDA-Public Use
  Company Number: US-BRISTOL-MYERS SQUIBB COMPANY-BMS-2021-083647

PATIENT
  Age: 12 Year
  Sex: Female
  Weight: 73.1 kg

DRUGS (4)
  1. NIVOLUMAB [Suspect]
     Active Substance: NIVOLUMAB
     Indication: B PRECURSOR TYPE ACUTE LEUKAEMIA
     Dosage: 228 MILLIGRAM
     Route: 065
     Dates: start: 20210317, end: 20210317
  2. DEXAMETHASONE. [Suspect]
     Active Substance: DEXAMETHASONE
     Indication: B PRECURSOR TYPE ACUTE LEUKAEMIA
     Dosage: 19 MILLIGRAM
     Route: 065
     Dates: start: 20210307, end: 20210314
  3. METHOTREXATE SODIUM. [Suspect]
     Active Substance: METHOTREXATE SODIUM
     Indication: B PRECURSOR TYPE ACUTE LEUKAEMIA
     Dosage: 30 MILLIGRAM
     Route: 065
     Dates: start: 20210303, end: 20210315
  4. BLINATUMOMAB [Suspect]
     Active Substance: BLINATUMOMAB
     Indication: B PRECURSOR TYPE ACUTE LEUKAEMIA
     Dosage: 287 MICROGRAM
     Route: 065
     Dates: start: 20210307, end: 20210322

REACTIONS (2)
  - Cytokine release syndrome [Recovered/Resolved]
  - Febrile neutropenia [Recovered/Resolved]

NARRATIVE: CASE EVENT DATE: 20210319
